FAERS Safety Report 5874979-5 (Version None)
Quarter: 2008Q3

REPORT INFORMATION
  Report Type: 
  Country: None (occurrence: None)
  Receive Date: 20080908
  Receipt Date: 20080908
  Transmission Date: 20090109
  Serious: No
  Sender: FDA-Public Use
  Company Number: None

PATIENT
  Age: 11 Year
  Sex: Female
  Weight: 35.3806 kg

DRUGS (1)
  1. ZYRTEC [Suspect]
     Indication: SEASONAL ALLERGY
     Dosage: 10MG AT BEDTIME PO
     Route: 048
     Dates: start: 20080502, end: 20080507

REACTIONS (4)
  - ABNORMAL BEHAVIOUR [None]
  - AGGRESSION [None]
  - ANGER [None]
  - SUICIDAL IDEATION [None]
